FAERS Safety Report 6290924-5 (Version None)
Quarter: 2009Q3

REPORT INFORMATION
  Report Type: 
  Country: None (occurrence: None)
  Receive Date: 20090730
  Receipt Date: 20090722
  Transmission Date: 20100115
  Serious: Yes (Hospitalization, Other)
  Sender: FDA-Public Use
  Company Number: PHHY2009DE30597

PATIENT
  Age: 50 Year
  Sex: Female
  Weight: 53 kg

DRUGS (15)
  1. MYFORTIC [Suspect]
     Indication: RENAL TRANSPLANT
     Dosage: 360 MG, QID
     Route: 048
     Dates: start: 20090101
  2. PROGRAF [Suspect]
     Indication: RENAL TRANSPLANT
     Dosage: 3 MG, BID
     Route: 048
     Dates: start: 20080301
  3. PROGRAF [Suspect]
     Dosage: 2.5 MG, BID
     Route: 048
     Dates: start: 20090421
  4. PREDNISOLONE [Suspect]
     Indication: RENAL TRANSPLANT
     Dosage: 15 MG, QD
     Dates: start: 20090421
  5. AMLODIPINE [Concomitant]
     Indication: HYPERTENSION
     Dosage: 5 MG, BID
     Route: 048
     Dates: start: 20080101
  6. AMPHOTERICIN B [Concomitant]
     Dosage: 10 MG, QID
     Route: 048
     Dates: start: 20090417
  7. METOPROLOL SUCCINATE [Concomitant]
     Indication: HYPERTENSION
     Dosage: 23.75 MG, BID
     Route: 048
     Dates: start: 20080101
  8. CALCIMAGON-D3 [Concomitant]
     Indication: OSTEOPOROSIS
     Dosage: 1 DF, BID
     Route: 048
     Dates: start: 20080101
  9. DELIX [Concomitant]
     Indication: HYPERTENSION
     Dosage: 2.5 MG, QD
     Route: 048
     Dates: start: 20090201
  10. EINSALPHA [Concomitant]
     Indication: OSTEOPOROSIS
     Dosage: 2 UG, QD
     Route: 048
     Dates: start: 20080101
  11. LEVOTHYROXINE SODIUM [Concomitant]
     Indication: HYPOTHYROIDISM
     Dosage: 125 UG, QD
     Route: 048
     Dates: start: 20030101
  12. PANTOZOL [Concomitant]
     Indication: PROPHYLAXIS AGAINST GASTROINTESTINAL ULCER
     Dosage: 40 MG, QD
     Route: 048
     Dates: start: 20080101
  13. VITAMIN B-12 [Concomitant]
     Indication: ANAEMIA
     Dosage: 1 MG, QD
     Route: 058
     Dates: start: 20080101
  14. METHYLPREDNISOLONE [Concomitant]
     Indication: RENAL TRANSPLANT
     Dosage: 15 MG, QD
     Route: 048
     Dates: start: 20080101
  15. METHYLPREDNISOLONE [Concomitant]
     Dosage: 250 MG, QID
     Route: 048
     Dates: start: 20090201

REACTIONS (8)
  - CYTOMEGALOVIRUS INFECTION [None]
  - HEADACHE [None]
  - HYPERHIDROSIS [None]
  - HYPERTENSIVE HEART DISEASE [None]
  - KIDNEY TRANSPLANT REJECTION [None]
  - PAIN IN EXTREMITY [None]
  - PYREXIA [None]
  - RENAL FAILURE CHRONIC [None]
